FAERS Safety Report 9958869 (Version 1)
Quarter: 2014Q1

REPORT INFORMATION
  Report Type: Spontaneous
  Country: US (occurrence: None)
  Receive Date: 20140228
  Receipt Date: 20140228
  Transmission Date: 20141002
  Serious: Yes (Hospitalization)
  Sender: FDA-Public Use
  Company Number: None

PATIENT
  Age: 76 Year
  Sex: Male
  Weight: 85.73 kg

DRUGS (1)
  1. EMEND [Suspect]
     Indication: NAUSEA
     Dosage: MIXED 150 MG/150 MC ONCE IV
     Route: 042
     Dates: start: 20140226

REACTIONS (7)
  - Back pain [None]
  - Chest pain [None]
  - Flushing [None]
  - Dyspnoea [None]
  - Blood pressure increased [None]
  - Heart rate increased [None]
  - Oxygen saturation decreased [None]
